FAERS Safety Report 8976164 (Version 1)
Quarter: 2012Q4

REPORT INFORMATION
  Report Type: 
  Country: US (occurrence: US)
  Receive Date: 20121219
  Receipt Date: 20121219
  Transmission Date: 20130627
  Serious: No
  Sender: FDA-Public Use
  Company Number: US-AMGEN-USASP2012059955

PATIENT
  Age: 68 Year
  Sex: Male
  Weight: 73.92 kg

DRUGS (4)
  1. XGEVA [Suspect]
     Indication: PROSTATE CANCER
     Dosage: 120 mg, one time dose
     Route: 058
     Dates: start: 20120713
  2. FIRMAGON [Concomitant]
     Indication: PROSTATE CANCER
     Dosage: 240 mg, one time dose
     Route: 058
     Dates: start: 20120511
  3. LUPRON [Concomitant]
     Indication: PROSTATE CANCER
     Dosage: 22.5 mg, q3mo
     Route: 030
     Dates: start: 20120608
  4. LUPRON [Concomitant]
     Dosage: 22.5 mg, q3mo
     Route: 030
     Dates: start: 20120911

REACTIONS (1)
  - Hypophosphataemia [Recovering/Resolving]
